FAERS Safety Report 9729822 (Version 3)
Quarter: 2015Q3

REPORT INFORMATION
  Report Type: Spontaneous
  Country: US (occurrence: US)
  Receive Date: 20131204
  Receipt Date: 20150804
  Transmission Date: 20151125
  Serious: No
  Sender: FDA-Public Use
  Company Number: US-GILEAD-2009-0022334

PATIENT
  Age: 78 Year
  Sex: Male

DRUGS (1)
  1. LETAIRIS [Suspect]
     Active Substance: AMBRISENTAN
     Indication: PULMONARY ARTERIAL HYPERTENSION
     Route: 048
     Dates: start: 20081120, end: 20090624

REACTIONS (6)
  - Ageusia [Unknown]
  - Dyspnoea [Unknown]
  - Anosmia [Unknown]
  - Paranasal sinus hypersecretion [Unknown]
  - Nasal congestion [Unknown]
  - Insomnia [Unknown]
